FAERS Safety Report 9772926 (Version 1)
Quarter: 2013Q4

REPORT INFORMATION
  Report Type: Spontaneous
  Country: US (occurrence: US)
  Receive Date: 20131219
  Receipt Date: 20131219
  Transmission Date: 20140711
  Serious: No
  Sender: FDA-Public Use
  Company Number: US-PFIZER INC-2013359095

PATIENT
  Age: 64 Year
  Sex: Male
  Weight: 63.49 kg

DRUGS (1)
  1. ADVIL [Suspect]
     Indication: ARTHRALGIA
     Dosage: 200 MG, UNK
     Dates: start: 20131212

REACTIONS (1)
  - Drug ineffective [Unknown]
